FAERS Safety Report 21056154 (Version 1)
Quarter: 2022Q3

REPORT INFORMATION
  Report Type: Spontaneous
  Country: GB (occurrence: GB)
  Receive Date: 20220708
  Receipt Date: 20220708
  Transmission Date: 20221027
  Serious: Yes (Disabling, Other)
  Sender: FDA-Public Use
  Company Number: GB-MHRA-INPE932C068-243F-436A-855B-CE144A3EB781

PATIENT
  Age: 74 Year
  Sex: Male
  Weight: 125 kg

DRUGS (20)
  1. ATORVASTATIN [Suspect]
     Active Substance: ATORVASTATIN
     Indication: Product used for unknown indication
     Dosage: 20MG DAILY
     Route: 048
     Dates: start: 20220406, end: 20220623
  2. ALLOPURINOL [Concomitant]
     Active Substance: ALLOPURINOL
     Indication: Product used for unknown indication
     Dosage: TWO DAILY
     Route: 065
     Dates: start: 20220518
  3. AMLODIPINE [Concomitant]
     Active Substance: AMLODIPINE BESYLATE
     Indication: Product used for unknown indication
     Dosage: 1 TABLET ONCE A DAY NOTES FOR PATIENT: MONITORING ON 30/3/22
     Route: 065
     Dates: start: 20220518
  4. BISOPROLOL [Concomitant]
     Active Substance: BISOPROLOL
     Indication: Product used for unknown indication
     Dosage: 1 TABLET TWICE A DAY
     Route: 065
     Dates: start: 20220518
  5. BECONASE AQ [Concomitant]
     Active Substance: BECLOMETHASONE DIPROPIONATE MONOHYDRATE
     Indication: Product used for unknown indication
     Dosage: USE REGULARLY
     Route: 065
     Dates: start: 20220518
  6. CETIRIZINE [Concomitant]
     Active Substance: CETIRIZINE HYDROCHLORIDE
     Indication: Product used for unknown indication
     Dosage: TAKE ONE TABLET DAILY
     Route: 065
     Dates: start: 20220518
  7. INDAPAMIDE [Concomitant]
     Active Substance: INDAPAMIDE
     Indication: Product used for unknown indication
     Dosage: 1 TABLET ONCE A DAY.
     Route: 065
     Dates: start: 20220518
  8. LANSOPRAZOLE [Concomitant]
     Active Substance: LANSOPRAZOLE
     Indication: Product used for unknown indication
     Dosage: TAKE ONE OR TWO IN THE MORNING
     Route: 065
     Dates: start: 20220518
  9. LEVOTHYROXINE [Concomitant]
     Active Substance: LEVOTHYROXINE
     Indication: Product used for unknown indication
     Dosage: 1 TABLET ONCE A DAY
     Route: 065
     Dates: start: 20220623
  10. LEVOTHYROXINE [Concomitant]
     Active Substance: LEVOTHYROXINE
     Dosage: 1 TABLET ONCE A DAY. REPEAT BLOOD TEST DUE SEPT 2022
     Route: 065
     Dates: start: 20220518
  11. LEVOTHYROXINE [Concomitant]
     Active Substance: LEVOTHYROXINE
     Dosage: 1 TABLET ONCE A DAY. REPEAT BLOOD TEST DUE SEPT 2022
     Route: 065
     Dates: start: 20220518, end: 20220623
  12. WARFARIN [Concomitant]
     Active Substance: WARFARIN
     Indication: Product used for unknown indication
     Dosage: AS PER INR
     Route: 065
     Dates: start: 20220518
  13. WARFARIN [Concomitant]
     Active Substance: WARFARIN
     Dosage: AS PER INR CLINIC
     Route: 065
     Dates: start: 20220518
  14. WARFARIN [Concomitant]
     Active Substance: WARFARIN
     Dosage: AS DIRECTED
     Route: 065
     Dates: start: 20220421
  15. WARFARIN [Concomitant]
     Active Substance: WARFARIN
     Dosage: AS PER INR CLINIC
     Route: 065
     Dates: start: 20220421
  16. WARFARIN [Concomitant]
     Active Substance: WARFARIN
     Dosage: AS DIRECTED
     Route: 065
     Dates: start: 20220518
  17. WARFARIN [Concomitant]
     Active Substance: WARFARIN
     Dosage: AS PER INR CLINIC
     Route: 065
     Dates: start: 20220421, end: 20220518
  18. WARFARIN [Concomitant]
     Active Substance: WARFARIN
     Dosage: AS PER INR
     Route: 065
     Dates: start: 20220421, end: 20220518
  19. WARFARIN [Concomitant]
     Active Substance: WARFARIN
     Dosage: AS DIRECTED
     Route: 065
     Dates: start: 20220421, end: 20220518
  20. WARFARIN [Concomitant]
     Active Substance: WARFARIN
     Dosage: AS PER INR
     Route: 065
     Dates: start: 20220421

REACTIONS (1)
  - Adverse drug reaction [Recovering/Resolving]

NARRATIVE: CASE EVENT DATE: 20220427
